FAERS Safety Report 8993432 (Version 1)
Quarter: 2013Q1

REPORT INFORMATION
  Report Type: Spontaneous
  Country: US (occurrence: US)
  Receive Date: 20130102
  Receipt Date: 20130102
  Transmission Date: 20140127
  Serious: No
  Sender: FDA-Public Use
  Company Number: US-PFIZER INC-2012332511

PATIENT
  Sex: Female
  Weight: 65.76 kg

DRUGS (4)
  1. ZITHROMAX [Suspect]
     Indication: SINUSITIS
     Dosage: UNK
     Dates: start: 20121221, end: 20121223
  2. ZITHROMAX [Suspect]
     Indication: MALAISE
  3. ZITHROMAX [Suspect]
     Indication: PYREXIA
  4. ROBITUSSIN DM [Suspect]
     Indication: COUGH
     Dosage: UNK, DAILY
     Dates: start: 201212

REACTIONS (1)
  - Drug ineffective [Unknown]
